FAERS Safety Report 26067174 (Version 2)
Quarter: 2025Q4

REPORT INFORMATION
  Report Type: Report from Study
  Country: ZA (occurrence: ZA)
  Receive Date: 20251119
  Receipt Date: 20251121
  Transmission Date: 20260118
  Serious: Yes (Other)
  Sender: ROCHE
  Company Number: ZA-ROCHE-10000405849

PATIENT
  Sex: Female

DRUGS (3)
  1. VABYSMO [Suspect]
     Active Substance: FARICIMAB-SVOA
     Indication: Macular degeneration
     Route: 050
     Dates: start: 20250901
  2. VABYSMO [Suspect]
     Active Substance: FARICIMAB-SVOA
     Indication: Neovascular age-related macular degeneration
  3. EYLEA [Concomitant]
     Active Substance: AFLIBERCEPT

REACTIONS (4)
  - Optical coherence tomography abnormal [Unknown]
  - Retinal thickening [Unknown]
  - Visual impairment [Unknown]
  - Off label use [Unknown]
